FAERS Safety Report 19798486 (Version 2)
Quarter: 2022Q1

REPORT INFORMATION
  Report Type: Spontaneous
  Country: US (occurrence: None)
  Receive Date: 20210907
  Receipt Date: 20220104
  Transmission Date: 20220424
  Serious: Yes (Other)
  Sender: FDA-Public Use
  Company Number: 2021A707794

PATIENT
  Age: 22558 Day
  Sex: Female
  Weight: 64 kg

DRUGS (30)
  1. PRILOSEC [Suspect]
     Active Substance: OMEPRAZOLE MAGNESIUM
     Indication: Gastrooesophageal reflux disease
     Route: 048
     Dates: start: 1998, end: 2019
  2. PRILOSEC [Suspect]
     Active Substance: OMEPRAZOLE MAGNESIUM
     Indication: Gastrooesophageal reflux disease
     Route: 048
     Dates: start: 1991, end: 2003
  3. PRILOSEC OTC [Suspect]
     Active Substance: OMEPRAZOLE MAGNESIUM
     Indication: Gastrooesophageal reflux disease
     Route: 048
     Dates: start: 1998, end: 2019
  4. PRILOSEC OTC [Suspect]
     Active Substance: OMEPRAZOLE MAGNESIUM
     Indication: Gastrooesophageal reflux disease
     Dosage: GENERIC
     Route: 065
     Dates: start: 2003, end: 2019
  5. PRILOSEC OTC [Suspect]
     Active Substance: OMEPRAZOLE MAGNESIUM
     Indication: Gastrooesophageal reflux disease
     Route: 048
     Dates: start: 2003, end: 2019
  6. ACETAMINOPHEN [Concomitant]
     Active Substance: ACETAMINOPHEN
     Indication: Headache
     Route: 065
     Dates: start: 1989
  7. ALLEGRA [Concomitant]
     Active Substance: FEXOFENADINE HYDROCHLORIDE
     Indication: Hypersensitivity
     Route: 065
  8. MUCINEX [Concomitant]
     Active Substance: GUAIFENESIN
     Indication: Nasopharyngitis
     Route: 065
  9. IBUPROFEN [Concomitant]
     Active Substance: IBUPROFEN
     Indication: Pain
     Route: 065
  10. PEPCID [Concomitant]
     Active Substance: FAMOTIDINE
  11. TUMS [Concomitant]
     Active Substance: CALCIUM CARBONATE
     Route: 065
     Dates: start: 1989, end: 1990
  12. ADVAIR HFA [Concomitant]
     Active Substance: FLUTICASONE PROPIONATE\SALMETEROL XINAFOATE
     Indication: Hypersensitivity
     Route: 065
     Dates: start: 2012
  13. ADVAIR HFA [Concomitant]
     Active Substance: FLUTICASONE PROPIONATE\SALMETEROL XINAFOATE
     Indication: Irregular breathing
     Route: 065
     Dates: start: 2012
  14. AMOXICILLIN [Concomitant]
     Active Substance: AMOXICILLIN
     Indication: Infection
     Route: 065
     Dates: start: 2012
  15. AZITHROMYCIN [Concomitant]
     Active Substance: AZITHROMYCIN
     Indication: Infection
     Route: 065
     Dates: start: 2011
  16. CHLORTHALIDONE [Concomitant]
     Active Substance: CHLORTHALIDONE
     Indication: Blood pressure abnormal
     Route: 065
  17. DICLOFENAC [Concomitant]
     Active Substance: DICLOFENAC
     Indication: Analgesic therapy
     Route: 065
     Dates: start: 2011, end: 2015
  18. ESTRADIOL [Concomitant]
     Active Substance: ESTRADIOL
     Indication: Hormone level abnormal
     Route: 065
  19. FENOFIBRATE [Concomitant]
     Active Substance: FENOFIBRATE
     Indication: Blood cholesterol abnormal
     Route: 065
  20. FLUTICASONE [Concomitant]
     Active Substance: FLUTICASONE
     Indication: Hypersensitivity
     Route: 065
     Dates: start: 2011, end: 2014
  21. HYDROXYZINE [Concomitant]
     Active Substance: HYDROXYZINE HYDROCHLORIDE
     Indication: Anxiety
     Route: 065
     Dates: start: 2012
  22. MEDROXYPROGESTERONE [Concomitant]
     Active Substance: MEDROXYPROGESTERONE
     Indication: Haemorrhage
     Route: 065
     Dates: start: 2012
  23. PREMPRO [Concomitant]
     Active Substance: ESTROGENS, CONJUGATED\MEDROXYPROGESTERONE ACETATE
     Indication: Hormone level abnormal
     Route: 065
     Dates: start: 2011, end: 2015
  24. PROGESTERONE [Concomitant]
     Active Substance: PROGESTERONE
     Indication: Hormone level abnormal
     Route: 065
  25. SULFAMETHOXAZOLE\TRIMETHOPRIM [Concomitant]
     Active Substance: SULFAMETHOXAZOLE\TRIMETHOPRIM
     Indication: Bacterial infection
     Route: 065
     Dates: start: 2012
  26. TRAMADOL [Concomitant]
     Active Substance: TRAMADOL
     Indication: Analgesic therapy
     Route: 065
  27. TRAZODONE [Concomitant]
     Active Substance: TRAZODONE HYDROCHLORIDE
     Indication: Sleep disorder
     Route: 065
     Dates: start: 2011
  28. VENLAFAXINE [Concomitant]
     Active Substance: VENLAFAXINE HYDROCHLORIDE
     Indication: Anxiety
     Route: 065
     Dates: start: 2011
  29. METHYLPREDNISOLONE [Concomitant]
     Active Substance: METHYLPREDNISOLONE
  30. PROMETHAZINE [Concomitant]
     Active Substance: PROMETHAZINE HYDROCHLORIDE

REACTIONS (2)
  - Chronic kidney disease [Not Recovered/Not Resolved]
  - Acute kidney injury [Unknown]

NARRATIVE: CASE EVENT DATE: 20191111
